FAERS Safety Report 9475482 (Version 1)
Quarter: 2013Q3

REPORT INFORMATION
  Report Type: Spontaneous
  Country: US (occurrence: US)
  Receive Date: 20130826
  Receipt Date: 20130826
  Transmission Date: 20140515
  Serious: No
  Sender: FDA-Public Use
  Company Number: US-009507513-1308USA011304

PATIENT
  Sex: Female

DRUGS (4)
  1. DORZOLAMIDE HYDROCHLORIDE [Suspect]
     Dosage: UNK
     Route: 047
  2. CELEXA [Concomitant]
     Dosage: UNK
  3. WELLBUTRIN [Concomitant]
     Dosage: UNK
  4. LITHIUM [Concomitant]
     Dosage: UNK

REACTIONS (1)
  - Intraocular pressure increased [Unknown]
